FAERS Safety Report 20553885 (Version 1)
Quarter: 2022Q1

REPORT INFORMATION
  Report Type: Spontaneous
  Country: DE (occurrence: None)
  Receive Date: 20220304
  Receipt Date: 20220304
  Transmission Date: 20220423
  Serious: Yes (Other)
  Sender: FDA-Public Use
  Company Number: 2022A091080

PATIENT
  Age: 74 Year
  Sex: Female

DRUGS (2)
  1. ONDEXXYA [Suspect]
     Active Substance: ANDEXANET ALFA
     Dosage: 800.0MG UNKNOWN
     Route: 040
     Dates: start: 20210805
  2. ONDEXXYA [Suspect]
     Active Substance: ANDEXANET ALFA
     Dosage: 160.0MG UNKNOWN
     Route: 040
     Dates: start: 20210805

REACTIONS (1)
  - Thrombosis [Recovered/Resolved]
